FAERS Safety Report 9651127 (Version 2)
Quarter: 2013Q4

REPORT INFORMATION
  Report Type: Spontaneous
  Country: US (occurrence: US)
  Receive Date: 20131029
  Receipt Date: 20131126
  Transmission Date: 20140711
  Serious: No
  Sender: FDA-Public Use
  Company Number: US-PFIZER INC-2013306876

PATIENT
  Age: 60 Year
  Sex: Male

DRUGS (4)
  1. VIAGRA [Suspect]
     Indication: ERECTILE DYSFUNCTION
     Dosage: 100 MG, AS NEEDED, PRN
     Route: 048
     Dates: start: 20070905
  2. BUPROPION XL [Concomitant]
     Dosage: 300 MG, UNK
  3. FLUOXETINE [Concomitant]
     Dosage: 20 MG, UNK
  4. LUNESTA [Concomitant]
     Dosage: 3 MG, UNK

REACTIONS (1)
  - Drug ineffective [Unknown]
